FAERS Safety Report 21591934 (Version 1)
Quarter: 2022Q4

REPORT INFORMATION
  Report Type: Spontaneous
  Country: DE (occurrence: DE)
  Receive Date: 20221114
  Receipt Date: 20221114
  Transmission Date: 20230113
  Serious: Yes (Other)
  Sender: FDA-Public Use
  Company Number: DE-EMBRYOTOX-202106495

PATIENT
  Sex: Male
  Weight: 2.6 kg

DRUGS (4)
  1. CITALOPRAM HYDROBROMIDE [Suspect]
     Active Substance: CITALOPRAM HYDROBROMIDE
     Indication: Exposure during pregnancy
     Dosage: 20 MG, QD
     Route: 064
     Dates: start: 20201212, end: 20210916
  2. DIETHYLPROPION HYDROCHLORIDE [Concomitant]
     Active Substance: DIETHYLPROPION HYDROCHLORIDE
     Indication: Exposure during pregnancy
     Dosage: 75 MG/D (3X25 MG)
     Route: 064
     Dates: start: 20210105, end: 20210126
  3. BOOSTRIX [Concomitant]
     Active Substance: TETANUS TOXOID, REDUCED DIPHTHERIA TOXOID AND ACELLULAR PERTUSSIS VACCINE, ADSORBED ANTIGENS
     Indication: Exposure during pregnancy
     Route: 064
     Dates: start: 20210629, end: 20210629
  4. MINERALS\VITAMINS [Concomitant]
     Active Substance: MINERALS\VITAMINS
     Indication: Exposure during pregnancy
     Dosage: UNK
     Route: 064
     Dates: start: 20210126, end: 20210916

REACTIONS (2)
  - Small for dates baby [Unknown]
  - Pregnancy [Unknown]

NARRATIVE: CASE EVENT DATE: 20210901
